FAERS Safety Report 7642887-5 (Version None)
Quarter: 2011Q3

REPORT INFORMATION
  Report Type: 
  Country: None (occurrence: None)
  Receive Date: 20110728
  Receipt Date: 20110719
  Transmission Date: 20111222
  Serious: Yes (Other)
  Sender: FDA-Public Use
  Company Number: PHHY2011JP30986

PATIENT
  Age: 14 Year
  Sex: Male

DRUGS (2)
  1. NEORAL [Suspect]
     Indication: SYSTEMIC LUPUS ERYTHEMATOSUS
     Dosage: 135 MG, BID
     Route: 048
     Dates: start: 20081218, end: 20110404
  2. NEORAL [Suspect]
     Dosage: 75 MG
     Dates: start: 20110405

REACTIONS (5)
  - BLOOD LACTATE DEHYDROGENASE INCREASED [None]
  - HAEMOLYTIC ANAEMIA [None]
  - BLOOD BILIRUBIN INCREASED [None]
  - ASPARTATE AMINOTRANSFERASE INCREASED [None]
  - ALANINE AMINOTRANSFERASE INCREASED [None]
